FAERS Safety Report 18674792 (Version 9)
Quarter: 2021Q2

REPORT INFORMATION
  Report Type: Spontaneous
  Country: PL (occurrence: PL)
  Receive Date: 20201228
  Receipt Date: 20210522
  Transmission Date: 20210717
  Serious: Yes (Hospitalization, Other)
  Sender: FDA-Public Use
  Company Number: PL-AUROBINDO-AUR-APL-2020-063198

PATIENT
  Age: 42 Year
  Sex: Male

DRUGS (46)
  1. PARACETAMOL [Suspect]
     Active Substance: ACETAMINOPHEN
     Indication: BONE PAIN
  2. FENTANYL. [Suspect]
     Active Substance: FENTANYL
     Indication: SYSTEMIC MASTOCYTOSIS
     Dosage: 200 MICROGRAM,
     Route: 002
  3. IBUPROFEN. [Suspect]
     Active Substance: IBUPROFEN
     Indication: ARTHRALGIA
  4. METAMIZOLE [Suspect]
     Active Substance: METAMIZOLE
     Indication: PAIN
     Dosage: UNK
     Route: 065
  5. MORPHINE [Suspect]
     Active Substance: MORPHINE
     Indication: BONE PAIN
  6. GABAPENTIN. [Suspect]
     Active Substance: GABAPENTIN
     Indication: ARTHRALGIA
     Dosage: 300 MILLIGRAM, FOUR TIMES/DAY
     Route: 065
  7. PARACETAMOL [Suspect]
     Active Substance: ACETAMINOPHEN
     Indication: ANALGESIC THERAPY
  8. TRAMADOL. [Suspect]
     Active Substance: TRAMADOL
     Indication: ARTHRALGIA
  9. IBUPROFEN. [Suspect]
     Active Substance: IBUPROFEN
     Indication: MASTOCYTOSIS
  10. MORPHINE [Suspect]
     Active Substance: MORPHINE
     Indication: ANALGESIC THERAPY
  11. MORPHINE [Suspect]
     Active Substance: MORPHINE
     Indication: ARTHRALGIA
  12. OXYCODONE [Suspect]
     Active Substance: OXYCODONE
     Dosage: 100 MILLIGRAM, FOUR TIMES/DAY
     Route: 065
  13. TRAMADOL. [Suspect]
     Active Substance: TRAMADOL
     Indication: ANALGESIC THERAPY
     Dosage: UNK
     Route: 065
  14. IBUPROFEN. [Suspect]
     Active Substance: IBUPROFEN
     Indication: BONE PAIN
  15. KETOPROFEN. [Suspect]
     Active Substance: KETOPROFEN
     Indication: ANALGESIC THERAPY
     Dosage: UNK
     Route: 065
  16. MORPHINE [Suspect]
     Active Substance: MORPHINE
     Indication: MASTOCYTOSIS
  17. GABAPENTIN. [Suspect]
     Active Substance: GABAPENTIN
     Indication: PAIN
     Dosage: 300 MILLIGRAM, 3 TIMES A DAY
     Route: 065
  18. PARACETAMOL [Suspect]
     Active Substance: ACETAMINOPHEN
     Indication: PAIN
     Dosage: UNK
     Route: 065
  19. PARACETAMOL [Suspect]
     Active Substance: ACETAMINOPHEN
     Indication: ARTHRALGIA
  20. TRAMADOL. [Suspect]
     Active Substance: TRAMADOL
     Indication: MASTOCYTOSIS
  21. FENTANYL. [Suspect]
     Active Substance: FENTANYL
     Indication: ARTHRALGIA
  22. IBUPROFEN. [Suspect]
     Active Substance: IBUPROFEN
     Indication: PAIN
  23. OXYCODONE [Suspect]
     Active Substance: OXYCODONE
     Indication: PAIN
     Dosage: 80 MILLIGRAM, 3 TIMES A DAY
     Route: 048
  24. OXYCODONE [Suspect]
     Active Substance: OXYCODONE
     Indication: ARTHRALGIA
     Dosage: 80 MILLIGRAM, FOUR TIMES/DAY
     Route: 048
  25. GABAPENTIN. [Suspect]
     Active Substance: GABAPENTIN
     Indication: OESOPHAGEAL PAIN
  26. PREGABALIN. [Suspect]
     Active Substance: PREGABALIN
     Dosage: 300 MILLIGRAM, EVERY HOUR, EVERY  8 HOUR
     Route: 065
  27. METAMIZOLE [Suspect]
     Active Substance: METAMIZOLE
     Indication: ANALGESIC THERAPY
  28. METAMIZOLE [Suspect]
     Active Substance: METAMIZOLE
     Indication: MASTOCYTOSIS
  29. FENTANYL. [Suspect]
     Active Substance: FENTANYL
     Indication: MASTOCYTOSIS
     Dosage: UNK
     Route: 045
  30. IBUPROFEN. [Suspect]
     Active Substance: IBUPROFEN
     Indication: ANALGESIC THERAPY
     Dosage: UNK
     Route: 065
  31. KETOPROFEN. [Suspect]
     Active Substance: KETOPROFEN
     Indication: ARTHRALGIA
  32. KETOPROFEN. [Suspect]
     Active Substance: KETOPROFEN
     Indication: ARTHRALGIA
  33. KETOPROFEN. [Suspect]
     Active Substance: KETOPROFEN
     Indication: MASTOCYTOSIS
  34. MORPHINE [Suspect]
     Active Substance: MORPHINE
     Indication: PAIN
     Dosage: UNK
     Route: 065
  35. OXYCODONE [Suspect]
     Active Substance: OXYCODONE
     Dosage: UNK, TWO TIMES A DAY
     Route: 065
  36. CLADRIBINE. [Concomitant]
     Active Substance: CLADRIBINE
     Indication: SYSTEMIC MASTOCYTOSIS
     Dosage: UNK
     Route: 065
  37. PREGABALIN. [Suspect]
     Active Substance: PREGABALIN
     Indication: PAIN
     Dosage: 150 MILLIGRAM, TWO TIMES A DAY
     Route: 065
  38. TRAMADOL. [Suspect]
     Active Substance: TRAMADOL
     Indication: PAIN
  39. FENTANYL. [Suspect]
     Active Substance: FENTANYL
     Indication: ARTHRALGIA
     Dosage: UNK,
     Route: 065
  40. FENTANYL. [Suspect]
     Active Substance: FENTANYL
     Indication: PAIN
  41. KETOPROFEN. [Suspect]
     Active Substance: KETOPROFEN
     Indication: BONE PAIN
  42. METAMIZOLE [Suspect]
     Active Substance: METAMIZOLE
     Indication: ARTHRALGIA
  43. METAMIZOLE [Suspect]
     Active Substance: METAMIZOLE
     Indication: BONE PAIN
  44. OXYCODONE [Suspect]
     Active Substance: OXYCODONE
     Dosage: 100 MILLIGRAM, 3 TIMES A DAY
     Route: 065
  45. OXYCODONE [Suspect]
     Active Substance: OXYCODONE
     Dosage: 80 MILLIGRAM, EVERY HOUR
     Route: 065
  46. TRAMADOL. [Suspect]
     Active Substance: TRAMADOL
     Indication: BONE PAIN

REACTIONS (14)
  - Constipation [Unknown]
  - Anaphylactic reaction [Recovered/Resolved]
  - Rhinitis allergic [Recovered/Resolved]
  - Anaphylactic shock [Recovered/Resolved]
  - Teething [Not Recovered/Not Resolved]
  - Therapeutic response decreased [Unknown]
  - Toothache [Not Recovered/Not Resolved]
  - Myalgia [Unknown]
  - Drug dependence [Recovered/Resolved]
  - Gingival pain [Not Recovered/Not Resolved]
  - Hypersensitivity [Recovered/Resolved]
  - Drug intolerance [Unknown]
  - Drug ineffective [Unknown]
  - Therapeutic product effect incomplete [Unknown]
